FAERS Safety Report 25230303 (Version 1)
Quarter: 2025Q2

REPORT INFORMATION
  Report Type: Spontaneous
  Country: US (occurrence: None)
  Receive Date: 20250422
  Receipt Date: 20250422
  Transmission Date: 20250717
  Serious: Yes (Death)
  Sender: FDA-CTU
  Company Number: None

PATIENT
  Age: 46 Year
  Sex: Male
  Weight: 135 kg

DRUGS (11)
  1. LURASIDONE [Suspect]
     Active Substance: LURASIDONE
     Indication: Bipolar disorder
     Dosage: OTHER QUANTITY : 30 TABLET(S);?FREQUENCY : DAILY;?
     Route: 048
     Dates: start: 20250402, end: 20250414
  2. CARVEDILOL [Concomitant]
     Active Substance: CARVEDILOL
  3. ARIPIPRAZOLE [Concomitant]
     Active Substance: ARIPIPRAZOLE
  4. ADDERALL [Concomitant]
     Active Substance: AMPHETAMINE ASPARTATE\AMPHETAMINE SULFATE\DEXTROAMPHETAMINE SACCHARATE\DEXTROAMPHETAMINE SULFATE
  5. LORAZEPAM [Concomitant]
     Active Substance: LORAZEPAM
  6. BENZONATATE [Concomitant]
     Active Substance: BENZONATATE
  7. PREDNISONE [Concomitant]
     Active Substance: PREDNISONE
  8. TRAZODONE [Concomitant]
     Active Substance: TRAZODONE HYDROCHLORIDE
  9. MIRTAZAPINE [Concomitant]
     Active Substance: MIRTAZAPINE
  10. ONDANSETRON [Concomitant]
     Active Substance: ONDANSETRON
  11. Ampheta/Dextro [Concomitant]

REACTIONS (1)
  - Completed suicide [None]

NARRATIVE: CASE EVENT DATE: 20250414
